FAERS Safety Report 19872865 (Version 1)
Quarter: 2021Q3

REPORT INFORMATION
  Report Type: Spontaneous
  Country: SG (occurrence: SG)
  Receive Date: 20210922
  Receipt Date: 20210922
  Transmission Date: 20211014
  Serious: Yes (Death, Hospitalization)
  Sender: FDA-Public Use
  Company Number: SG-DSJP-DSJ-2021-130123

PATIENT
  Age: 56 Year
  Sex: Female

DRUGS (2)
  1. ASPIRIN. [Concomitant]
     Active Substance: ASPIRIN
     Dosage: 300MG/DAY
  2. PRASUGREL HYDROCHLORIDE [Suspect]
     Active Substance: PRASUGREL HYDROCHLORIDE
     Indication: INTRACRANIAL ANEURYSM
     Dosage: 30?/DAY

REACTIONS (6)
  - Haemothorax [Unknown]
  - Pneumonia [Unknown]
  - Sepsis [Fatal]
  - Off label use [Unknown]
  - Pulmonary embolism [Unknown]
  - Urinary tract infection [Unknown]
